FAERS Safety Report 19443632 (Version 1)
Quarter: 2021Q2

REPORT INFORMATION
  Report Type: Spontaneous
  Country: US (occurrence: US)
  Receive Date: 20210621
  Receipt Date: 20210621
  Transmission Date: 20210717
  Serious: No
  Sender: FDA-Public Use
  Company Number: None

PATIENT
  Age: 53 Year
  Sex: Male

DRUGS (17)
  1. PEPCID [Concomitant]
     Active Substance: FAMOTIDINE
  2. POVIDONE?IODINE. [Concomitant]
     Active Substance: POVIDONE-IODINE
  3. OXCARBAZEPINE. [Concomitant]
     Active Substance: OXCARBAZEPINE
  4. POTASSIUM PHOSPHATE?SODIUM PHOSPHATE [Concomitant]
  5. KEPPRA [Concomitant]
     Active Substance: LEVETIRACETAM
  6. TYLENOL [Concomitant]
     Active Substance: ACETAMINOPHEN
  7. TESSALON [Concomitant]
     Active Substance: BENZONATATE
  8. ROBITUSSIN (GUAIFENESIN) [Concomitant]
     Active Substance: GUAIFENESIN
  9. INSULIN LISPRO [Concomitant]
     Active Substance: INSULIN LISPRO
  10. DEXTROSE. [Concomitant]
     Active Substance: DEXTROSE
  11. LABETALOL [Concomitant]
     Active Substance: LABETALOL\LABETALOL HYDROCHLORIDE
  12. GLUCAGON. [Concomitant]
     Active Substance: GLUCAGON
  13. INSULIN GLARGINE [Concomitant]
     Active Substance: INSULIN GLARGINE
  14. ATIVAN [Concomitant]
     Active Substance: LORAZEPAM
  15. REMDESIVIR. [Suspect]
     Active Substance: REMDESIVIR
     Indication: COVID-19 PNEUMONIA
     Dates: start: 20200518, end: 20200518
  16. LOVENOX [Concomitant]
     Active Substance: ENOXAPARIN SODIUM
  17. AMLODIPINE [Concomitant]
     Active Substance: AMLODIPINE BESYLATE

REACTIONS (7)
  - Pulseless electrical activity [None]
  - Bradycardia [None]
  - Atrial flutter [None]
  - Hypoxia [None]
  - Cardiac arrest [None]
  - Bundle branch block left [None]
  - Bundle branch block right [None]
